FAERS Safety Report 5200392-X (Version None)
Quarter: 2007Q1

REPORT INFORMATION
  Report Type: 
  Country: None (occurrence: None)
  Receive Date: 20070105
  Receipt Date: 20061228
  Transmission Date: 20070707
  Serious: Yes (Other)
  Sender: FDA-Public Use
  Company Number: US-PFIZER INC-2007000502

PATIENT
  Sex: Female
  Weight: 67.1 kg

DRUGS (6)
  1. ZYRTEC [Suspect]
     Indication: HYPERSENSITIVITY
  2. LIPITOR [Concomitant]
  3. MONTELUKAST [Concomitant]
  4. AVIANE-21 [Concomitant]
  5. TRAZODONE HCL [Concomitant]
  6. DETROL LA [Concomitant]

REACTIONS (2)
  - DIABETES MELLITUS [None]
  - DRUG INEFFECTIVE [None]
